FAERS Safety Report 13703486 (Version 2)
Quarter: 2017Q3

REPORT INFORMATION
  Report Type: Report from Study
  Country: US (occurrence: US)
  Receive Date: 20170629
  Receipt Date: 20170705
  Transmission Date: 20171127
  Serious: Yes (Hospitalization)
  Sender: FDA-Public Use
  Company Number: US-SHIRE-US201712707

PATIENT

DRUGS (1)
  1. NATPARA (PARATHYROID HORMONE) [Suspect]
     Active Substance: PARATHYROID HORMONE
     Indication: HYPOPARATHYROIDISM
     Dosage: 50 ?G, 1X/DAY:QD
     Route: 058
     Dates: start: 20170519

REACTIONS (10)
  - Migraine [Recovering/Resolving]
  - Paraesthesia [Unknown]
  - Accidental underdose [Recovered/Resolved]
  - Wrong technique in device usage process [Recovered/Resolved]
  - Muscular weakness [Unknown]
  - Injection site haemorrhage [Not Recovered/Not Resolved]
  - Contusion [Recovering/Resolving]
  - Headache [Unknown]
  - Hypotension [Unknown]
  - Chest pain [Recovering/Resolving]

NARRATIVE: CASE EVENT DATE: 20170519
